FAERS Safety Report 6203600-1 (Version None)
Quarter: 2009Q2

REPORT INFORMATION
  Report Type: 
  Country: None (occurrence: None)
  Receive Date: 20090522
  Receipt Date: 20090522
  Transmission Date: 20091009
  Serious: Yes (Other)
  Sender: FDA-Public Use
  Company Number: None

PATIENT
  Sex: Male
  Weight: 83.0083 kg

DRUGS (2)
  1. CRESTOR [Suspect]
     Indication: COMPUTERISED TOMOGRAM CORONARY ARTERY
     Dosage: 20 MG 1 PO QD PO
     Route: 048
     Dates: start: 20090112, end: 20090521
  2. CRESTOR [Suspect]
     Indication: HYPERCHOLESTEROLAEMIA
     Dosage: 20 MG 1 PO QD PO
     Route: 048
     Dates: start: 20090112, end: 20090521

REACTIONS (1)
  - GOUT [None]
